FAERS Safety Report 6542182-1 (Version None)
Quarter: 2010Q1

REPORT INFORMATION
  Report Type: 
  Country: None (occurrence: None)
  Receive Date: 20100119
  Receipt Date: 20100118
  Transmission Date: 20100710
  Serious: Yes (Hospitalization)
  Sender: FDA-Public Use
  Company Number: A0808104A

PATIENT
  Age: 47 Year
  Sex: Female
  Weight: 118.2 kg

DRUGS (2)
  1. AVANDAMET [Suspect]
     Indication: DIABETES MELLITUS
     Route: 048
     Dates: start: 20020501, end: 20031201
  2. AVANDIA [Suspect]
     Indication: DIABETES MELLITUS
     Dosage: 8MG PER DAY
     Route: 048
     Dates: start: 20040101, end: 20071201

REACTIONS (8)
  - ASTHENIA [None]
  - CARDIAC DISORDER [None]
  - CORONARY ARTERY DISEASE [None]
  - EMOTIONAL DISTRESS [None]
  - FATIGUE [None]
  - LIFE EXPECTANCY SHORTENED [None]
  - MYOCARDIAL INFARCTION [None]
  - QUALITY OF LIFE DECREASED [None]
